FAERS Safety Report 19784104 (Version 4)
Quarter: 2021Q4

REPORT INFORMATION
  Report Type: Spontaneous
  Country: US (occurrence: US)
  Receive Date: 20210903
  Receipt Date: 20211022
  Transmission Date: 20220303
  Serious: Yes (Hospitalization, Other)
  Sender: FDA-Public Use
  Company Number: US-UNITED THERAPEUTICS-UNT-2021-016164

PATIENT
  Age: 11 Year
  Sex: Male

DRUGS (3)
  1. REMODULIN [Suspect]
     Active Substance: TREPROSTINIL
     Indication: Pulmonary arterial hypertension
     Dosage: UNK, CONTINUING
     Route: 058
     Dates: start: 20180412
  2. REMODULIN [Suspect]
     Active Substance: TREPROSTINIL
     Dosage: 0.1395 ?G/KG, CONTINUING
     Route: 058
  3. REMODULIN [Suspect]
     Active Substance: TREPROSTINIL
     Dosage: 0.1325 ?G/KG, CONTINUING (PUMP RATE OF 0.038ML/HR)
     Route: 058
     Dates: start: 202108

REACTIONS (3)
  - Vomiting [Recovered/Resolved]
  - Cardiac failure [Unknown]
  - Migraine [Unknown]

NARRATIVE: CASE EVENT DATE: 20210815
